FAERS Safety Report 4401687-X (Version None)
Quarter: 2004Q3

REPORT INFORMATION
  Report Type: 
  Country: None (occurrence: None)
  Receive Date: 20040719
  Receipt Date: 20040708
  Transmission Date: 20050211
  Serious: Yes (Hospitalization)
  Sender: FDA-Public Use
  Company Number: FR-GLAXOSMITHKLINE-B0338442A

PATIENT
  Age: 67 Year
  Sex: Male

DRUGS (5)
  1. AUGMENTIN '125' [Suspect]
     Indication: LUNG DISORDER
     Dosage: 1G THREE TIMES PER DAY
     Route: 048
     Dates: start: 20040111, end: 20040119
  2. DAFALGAN [Suspect]
     Indication: ILL-DEFINED DISORDER
     Dosage: 1G THREE TIMES PER DAY
     Route: 048
     Dates: start: 20040107
  3. OFLOCET [Suspect]
     Indication: LUNG DISORDER
     Dosage: 200MG TWICE PER DAY
     Route: 042
     Dates: start: 20040112, end: 20040119
  4. ZYRTEC [Suspect]
     Indication: ILL-DEFINED DISORDER
     Dosage: 1UNIT PER DAY
     Route: 048
     Dates: start: 20040107
  5. ZYPREXA [Suspect]
     Indication: SCHIZOPHRENIA
     Dosage: 5MG PER DAY
     Route: 048
     Dates: start: 20040109, end: 20040115

REACTIONS (1)
  - HENOCH-SCHONLEIN PURPURA [None]
